FAERS Safety Report 10262977 (Version 6)
Quarter: 2015Q1

REPORT INFORMATION
  Report Type: Spontaneous
  Country: US (occurrence: US)
  Receive Date: 20140626
  Receipt Date: 20150121
  Transmission Date: 20150720
  Serious: Yes (Congenital Anomaly, Other)
  Sender: FDA-Public Use
  Company Number: US-ELI_LILLY_AND_COMPANY-US201406007505

PATIENT

DRUGS (1)
  1. SARAFEM [Suspect]
     Active Substance: FLUOXETINE HYDROCHLORIDE
     Indication: PRODUCT USED FOR UNKNOWN INDICATION
     Dosage: 40 MG, QD
     Route: 064

REACTIONS (4)
  - Spina bifida [Unknown]
  - Foetal exposure during pregnancy [Recovered/Resolved]
  - Tethered cord syndrome [Unknown]
  - Musculoskeletal discomfort [Unknown]
